FAERS Safety Report 7210121-6 (Version None)
Quarter: 2011Q1

REPORT INFORMATION
  Report Type: 
  Country: None (occurrence: None)
  Receive Date: 20110105
  Receipt Date: 20101218
  Transmission Date: 20110831
  Serious: No
  Sender: FDA-Public Use
  Company Number: US-B.I. PHARMACEUTICALS,INC./RIDGEFIELD-2010-BP-14955BP

PATIENT
  Sex: Male

DRUGS (5)
  1. DIGOXIN [Concomitant]
     Indication: HEART RATE IRREGULAR
  2. SIMVASTATIN [Concomitant]
  3. METOPROLOL TARTRATE [Concomitant]
     Indication: HYPERTENSION
  4. PRADAXA [Suspect]
     Indication: ATRIAL FIBRILLATION
     Dosage: 300 MG
     Route: 048
     Dates: start: 20101208
  5. COZAAR [Concomitant]
     Indication: HYPERTENSION

REACTIONS (1)
  - CHEST DISCOMFORT [None]
